FAERS Safety Report 4749418-8 (Version None)
Quarter: 2005Q3

REPORT INFORMATION
  Report Type: 
  Country: None (occurrence: None)
  Receive Date: 20050819
  Receipt Date: 20050726
  Transmission Date: 20060218
  Serious: Yes (Hospitalization, Other)
  Sender: FDA-Public Use
  Company Number: JP-MERCK-0507USA04043

PATIENT
  Age: 72 Year
  Sex: Female

DRUGS (5)
  1. UNASYN [Concomitant]
     Indication: PNEUMONIA
     Route: 042
     Dates: start: 20050704, end: 20050715
  2. MINOCYCLINE HCL [Concomitant]
     Indication: PNEUMONIA
     Route: 042
     Dates: start: 20050713, end: 20050715
  3. ACARDI [Concomitant]
     Indication: CARDIAC FAILURE
     Route: 048
     Dates: start: 20050714, end: 20050723
  4. BIOFERMIN R [Concomitant]
     Indication: DIARRHOEA
     Route: 048
     Dates: start: 20050713, end: 20050723
  5. PRIMAXIN [Suspect]
     Indication: PNEUMONIA
     Route: 041
     Dates: start: 20050715, end: 20050723

REACTIONS (2)
  - AGRANULOCYTOSIS [None]
  - CARDIAC FAILURE [None]
